FAERS Safety Report 25750311 (Version 1)
Quarter: 2025Q3

REPORT INFORMATION
  Report Type: Spontaneous
  Country: EU (occurrence: EU)
  Receive Date: 20250902
  Receipt Date: 20250902
  Transmission Date: 20251020
  Serious: Yes (Life-Threatening, Hospitalization)
  Sender: BAYER HEALTHCARE PHARMACEUTICALS INC.
  Company Number: EU-MLMSERVICE-20250820-PI620537-00230-1

PATIENT
  Age: 63 Year
  Sex: Female

DRUGS (4)
  1. MOXIFLOXACIN [Suspect]
     Active Substance: MOXIFLOXACIN
     Indication: Respiratory tract infection
     Route: 048
  2. NINTEDANIB [Concomitant]
     Active Substance: NINTEDANIB
     Dosage: 100 MG, QD
  3. AMINOPHYLLINE [Concomitant]
     Active Substance: AMINOPHYLLINE
     Indication: Pulmonary fibrosis
     Dosage: 100 MG, BID
  4. FLUVOXAMINE [Concomitant]
     Active Substance: FLUVOXAMINE
     Indication: Depression
     Dosage: 100 MG, QD

REACTIONS (4)
  - Generalised tonic-clonic seizure [Recovered/Resolved]
  - Terminal insomnia [None]
  - Apathy [None]
  - Anxiety [None]
